FAERS Safety Report 7150494-6 (Version None)
Quarter: 2010Q4

REPORT INFORMATION
  Report Type: 
  Country: None (occurrence: None)
  Receive Date: 20101124
  Receipt Date: 20101109
  Transmission Date: 20110411
  Serious: Yes (Hospitalization)
  Sender: FDA-Public Use
  Company Number: UTC-002204

PATIENT
  Age: 58 Year
  Sex: Female

DRUGS (1)
  1. REMODULIN [Suspect]
     Indication: COR PULMONALE CHRONIC
     Dosage: 63.36 UG/KG (0.044 UG/KG, 1 IN 1 MIN),SUBCUTANEOUS
     Route: 058
     Dates: start: 20090326

REACTIONS (2)
  - DEVICE MALFUNCTION [None]
  - PRODUCT PACKAGING ISSUE [None]
